FAERS Safety Report 7351610-3 (Version None)
Quarter: 2011Q1

REPORT INFORMATION
  Report Type: 
  Country: None (occurrence: None)
  Receive Date: 20110315
  Receipt Date: 20110308
  Transmission Date: 20110831
  Serious: No
  Sender: FDA-Public Use
  Company Number: US-ROXANE LABORATORIES, INC.-2011-RO-00293RO

PATIENT
  Age: 84 Year
  Sex: Male

DRUGS (4)
  1. APRISO [Concomitant]
     Indication: COLITIS ULCERATIVE
  2. FOLIC ACID [Concomitant]
     Indication: COLITIS ULCERATIVE
  3. AZATHIOPRINE [Suspect]
     Indication: COLITIS ULCERATIVE
     Dosage: 50 MG
     Route: 048
     Dates: start: 20110125
  4. PREVACID [Concomitant]

REACTIONS (1)
  - RASH [None]
